FAERS Safety Report 16354831 (Version 1)
Quarter: 2019Q2

REPORT INFORMATION
  Report Type: Spontaneous
  Country: FR (occurrence: FR)
  Receive Date: 20190524
  Receipt Date: 20190524
  Transmission Date: 20190711
  Serious: Yes (Hospitalization)
  Sender: FDA-Public Use
  Company Number: FR-009507513-1905FRA008681

PATIENT
  Age: 68 Year
  Sex: Male

DRUGS (1)
  1. KEYTRUDA [Suspect]
     Active Substance: PEMBROLIZUMAB
     Indication: METASTATIC MALIGNANT MELANOMA
     Dosage: 200 MILLIGRAM, Q3W
     Route: 041
     Dates: start: 201510, end: 20190318

REACTIONS (4)
  - Cerebral venous thrombosis [Recovering/Resolving]
  - Otitis media acute [Recovering/Resolving]
  - Septic embolus [Recovering/Resolving]
  - Meningeal disorder [Recovered/Resolved]

NARRATIVE: CASE EVENT DATE: 20190223
